FAERS Safety Report 8990974 (Version 1)
Quarter: 2012Q4

REPORT INFORMATION
  Report Type: 
  Country: AU (occurrence: AU)
  Receive Date: 20121231
  Receipt Date: 20121231
  Transmission Date: 20130627
  Serious: Yes (Death, Hospitalization)
  Sender: FDA-Public Use
  Company Number: AU-CELGENEUS-008-20785-12070376

PATIENT
  Age: 90 Year
  Sex: Male

DRUGS (10)
  1. THALIDOMIDE [Suspect]
     Indication: MULTIPLE MYELOMA
     Dosage: 50 Milligram
     Route: 048
     Dates: end: 20120703
  2. THALIDOMIDE [Suspect]
     Dosage: 50 Milligram
     Route: 048
     Dates: end: 2012
  3. FRUSEMIDE [Concomitant]
     Indication: DRUG USE FOR UNKNOWN INDICATION
     Dosage: 80 Milligram
     Route: 065
  4. DICLOXACILLIN [Concomitant]
     Indication: DRUG USE FOR UNKNOWN INDICATION
     Dosage: 2000 Milligram
     Route: 065
  5. FLUDROCORTISONE [Concomitant]
     Indication: DRUG USE FOR UNKNOWN INDICATION
     Dosage: 200 Microgram
     Route: 065
  6. SIMVASTATIN [Concomitant]
     Indication: DRUG USE FOR UNKNOWN INDICATION
     Dosage: 20 Microgram
     Route: 065
  7. OXAZEPAM [Concomitant]
     Indication: DRUG USE FOR UNKNOWN INDICATION
     Dosage: 30 Microgram
     Route: 065
  8. VITAMIN D [Concomitant]
     Indication: DRUG USE FOR UNKNOWN INDICATION
     Route: 065
  9. SERTRALINE [Concomitant]
     Indication: DRUG USE FOR UNKNOWN INDICATION
     Dosage: 100 Milligram
     Route: 065
  10. DEXAMETHASONE [Concomitant]
     Indication: DRUG USE FOR UNKNOWN INDICATION
     Route: 065

REACTIONS (7)
  - General physical health deterioration [Unknown]
  - Plasma cell myeloma [Fatal]
  - Cognitive disorder [Unknown]
  - Oedema peripheral [Unknown]
  - Renal amyloidosis [Unknown]
  - Drug dose omission [Recovered/Resolved]
  - Incorrect storage of drug [Unknown]
